FAERS Safety Report 4411225-3 (Version None)
Quarter: 2004Q3

REPORT INFORMATION
  Report Type: 
  Country: None (occurrence: None)
  Receive Date: 20040727
  Receipt Date: 20040720
  Transmission Date: 20050211
  Serious: Yes (Hospitalization)
  Sender: FDA-Public Use
  Company Number: DEWYE904315JUL04

PATIENT
  Age: 49 Year
  Sex: Female

DRUGS (8)
  1. VENLAFAXINE HCL [Suspect]
     Indication: ANXIETY
     Dosage: 75 MG 1X PER 1 DAY ORAL; 37.5 MG, 1X PER 1 DAY ORAL
     Route: 048
     Dates: start: 20040201, end: 20040308
  2. VENLAFAXINE HCL [Suspect]
     Indication: DEPRESSION
     Dosage: 75 MG 1X PER 1 DAY ORAL; 37.5 MG, 1X PER 1 DAY ORAL
     Route: 048
     Dates: start: 20040201, end: 20040308
  3. VENLAFAXINE HCL [Suspect]
     Indication: ANXIETY
     Dosage: 75 MG 1X PER 1 DAY ORAL; 37.5 MG, 1X PER 1 DAY ORAL
     Route: 048
     Dates: start: 20040308
  4. VENLAFAXINE HCL [Suspect]
     Indication: DEPRESSION
     Dosage: 75 MG 1X PER 1 DAY ORAL; 37.5 MG, 1X PER 1 DAY ORAL
     Route: 048
     Dates: start: 20040308
  5. INSIDON (OPIPRAMOL HYDROCHLORIDE) [Concomitant]
  6. TELMISARTAN (TELMISARTAN) [Concomitant]
  7. KATADOLON (FLUPIRTINE MALEATE) [Concomitant]
  8. BISOPROLOL FUMARATE [Concomitant]

REACTIONS (4)
  - BLOOD CHOLESTEROL INCREASED [None]
  - BRADYCARDIA [None]
  - HIGH DENSITY LIPOPROTEIN INCREASED [None]
  - SYNCOPE [None]
